FAERS Safety Report 9773060 (Version 2)
Quarter: 2013Q4

REPORT INFORMATION
  Report Type: Spontaneous
  Country: BR (occurrence: BR)
  Receive Date: 20131219
  Receipt Date: 20131224
  Transmission Date: 20140711
  Serious: No
  Sender: FDA-Public Use
  Company Number: BR-ASTRAZENECA-2013SE91187

PATIENT
  Age: 64 Year
  Sex: Female

DRUGS (2)
  1. CRESTOR [Suspect]
     Indication: BLOOD CHOLESTEROL INCREASED
     Route: 048
     Dates: start: 2009
  2. BENICAR [Concomitant]
     Indication: HYPERTENSION
     Dosage: UNKNOWN DOSE DAILY
     Route: 048
     Dates: start: 2009

REACTIONS (1)
  - No adverse event [Unknown]
